FAERS Safety Report 8378341-5 (Version None)
Quarter: 2012Q2

REPORT INFORMATION
  Report Type: 
  Country: None (occurrence: None)
  Receive Date: 20120521
  Receipt Date: 20120510
  Transmission Date: 20120825
  Serious: Yes (Hospitalization)
  Sender: FDA-Public Use
  Company Number: 1287097

PATIENT
  Age: 52 Year
  Sex: Female

DRUGS (1)
  1. PACLITAXEL [Suspect]
     Indication: BREAST CANCER
     Dosage: 140 MG MILLILGRAM (S), UNKNOWN, PARENTERAL
     Route: 051
     Dates: start: 20120430, end: 20120430

REACTIONS (5)
  - HYPERHIDROSIS [None]
  - INFUSION RELATED REACTION [None]
  - FLUSHING [None]
  - DYSPNOEA [None]
  - FEELING HOT [None]
